FAERS Safety Report 7085618-2 (Version None)
Quarter: 2010Q4

REPORT INFORMATION
  Report Type: 
  Country: None (occurrence: None)
  Receive Date: 20101027
  Receipt Date: 20101013
  Transmission Date: 20110411
  Serious: Yes (Other)
  Sender: FDA-Public Use
  Company Number: GER/USA/10/0016378

PATIENT
  Age: 58 Year
  Sex: Male

DRUGS (4)
  1. RISPERIDONE [Suspect]
     Indication: SCHIZOPHRENIA
     Dosage: 5 MG, 1 IN 1 D
  2. CHLORPROMAZINE [Suspect]
     Indication: SCHIZOPHRENIA
  3. METHADONE HCL [Suspect]
     Indication: PRODUCT USED FOR UNKNOWN INDICATION
     Dosage: 5 MG, 3 IN 1 D
  4. CLONAZEPAM [Suspect]
     Indication: SCHIZOPHRENIA
     Dosage: 4 MG, 1 IN 1 D

REACTIONS (2)
  - BULBAR PALSY [None]
  - GYNAECOMASTIA [None]
